FAERS Safety Report 7828643-3 (Version None)
Quarter: 2011Q4

REPORT INFORMATION
  Report Type: 
  Country: None (occurrence: None)
  Receive Date: 20111020
  Receipt Date: 20111017
  Transmission Date: 20120403
  Serious: Yes (Hospitalization, Other)
  Sender: FDA-Public Use
  Company Number: GXKR2011DE03035

PATIENT
  Age: 59 Year
  Sex: Female

DRUGS (20)
  1. PREDNISOLONE [Suspect]
     Dosage: 60 MG, UNK
     Route: 048
     Dates: start: 20110927
  2. FRAGMIN [Suspect]
     Dosage: UNK UKN, UNK
     Route: 058
  3. IPILIMUMAB [Suspect]
     Dosage: 162 MG, UNK
     Dates: start: 20110902
  4. ARIXTRA [Concomitant]
     Dosage: UNK MG, UNK, }2.5 MG
     Route: 058
     Dates: end: 20110921
  5. ARIXTRA [Concomitant]
     Dosage: 2.5 MG, UNK
     Route: 058
     Dates: start: 20110913
  6. SALOFALK ^AVENTIS^ [Concomitant]
     Indication: DIARRHOEA
     Dosage: 1500 MG, UNK
     Dates: start: 20110919
  7. METHYLPREDNISOLONE [Concomitant]
     Dosage: 150 MG, UNK
     Route: 042
     Dates: start: 20110930
  8. ASPIRIN [Suspect]
     Indication: PERIPHERAL ARTERIAL OCCLUSIVE DISEASE
     Dosage: 100 MG, UNK
     Route: 048
     Dates: start: 19960701
  9. IPILIMUMAB [Suspect]
     Indication: MALIGNANT MELANOMA
     Dosage: 171 MG, UNK
     Route: 042
     Dates: start: 20110810
  10. ZOPICLON [Concomitant]
     Dosage: UNK UKN, UNK
     Dates: start: 20110719
  11. PANTOPRAZOLE SODIUM [Concomitant]
     Dosage: 40 MG, BID
  12. LOPERAMIDE HCL [Concomitant]
     Indication: DIARRHOEA
     Dosage: UNK UKN, PRN
  13. LACTOBACILLUS [Concomitant]
     Dosage: UNK UKN, UNK
     Dates: start: 20110901
  14. NADROPARIN [Concomitant]
     Dosage: 0.6 ML, BID
     Dates: start: 20110929
  15. NADROPARIN [Concomitant]
     Dosage: 0.3 ML, UNK
     Dates: start: 20110926
  16. PREDNISOLONE [Suspect]
     Indication: DIARRHOEA
     Dosage: 150 MG, UNK
     Route: 048
     Dates: start: 20110914
  17. METHYLPREDNISOLONE [Concomitant]
     Indication: DIARRHOEA
     Dosage: 125 MG, UNK
     Dates: start: 20110910, end: 20110913
  18. ARIXTRA [Concomitant]
     Dosage: 2.5 MG, UNK
     Route: 058
     Dates: start: 20110922
  19. ARIXTRA [Concomitant]
     Dosage: UNK MG, UNK, }2.5 MG
     Route: 058
     Dates: start: 20110720, end: 20110909
  20. MESALAMINE [Concomitant]
     Dosage: 1 TSP, TID
     Dates: start: 20110919

REACTIONS (5)
  - DIARRHOEA [None]
  - LARGE INTESTINAL HAEMORRHAGE [None]
  - VASCULAR OCCLUSION [None]
  - COLITIS [None]
  - SENSORY LOSS [None]
